FAERS Safety Report 5902167-2 (Version None)
Quarter: 2008Q3

REPORT INFORMATION
  Report Type: 
  Country: None (occurrence: None)
  Receive Date: 20080929
  Receipt Date: 20080919
  Transmission Date: 20090109
  Serious: Yes (Other)
  Sender: FDA-Public Use
  Company Number: US-PFIZER INC-2008079482

PATIENT
  Sex: Male
  Weight: 61.363 kg

DRUGS (4)
  1. QUINAPRIL HCL [Suspect]
     Indication: HYPERTENSION
  2. TENORMIN [Concomitant]
  3. LIPITOR [Concomitant]
  4. ALLOPURINOL [Concomitant]

REACTIONS (1)
  - COELIAC DISEASE [None]
